FAERS Safety Report 9452332 (Version 2)
Quarter: 2013Q3

REPORT INFORMATION
  Report Type: Spontaneous
  Country: US (occurrence: US)
  Receive Date: 20130812
  Receipt Date: 20130828
  Transmission Date: 20140515
  Serious: No
  Sender: FDA-Public Use
  Company Number: US-009507513-1308USA004688

PATIENT
  Sex: Female

DRUGS (3)
  1. PEGINTRON [Suspect]
     Indication: HEPATITIS C
     Dosage: 0.5, REDIPEN
     Dates: start: 20130726, end: 2013
  2. PEGINTRON [Suspect]
     Dosage: 0.35, REDIPEN
     Dates: start: 2013
  3. REBETOL [Suspect]
     Indication: HEPATITIS C
     Dosage: 3 IN THE MORNING, 2 IN EVENING, 2 AFTER SUPPER
     Route: 048
     Dates: start: 20130726

REACTIONS (19)
  - Back pain [Unknown]
  - Pain [Unknown]
  - Feeling cold [Unknown]
  - Feeling hot [Unknown]
  - Disorientation [Unknown]
  - Insomnia [Unknown]
  - Headache [Unknown]
  - Nausea [Unknown]
  - Abdominal pain [Unknown]
  - Anxiety [Unknown]
  - Pyrexia [Unknown]
  - Chills [Unknown]
  - Chest pain [Unknown]
  - Fatigue [Unknown]
  - Influenza like illness [Unknown]
  - Irritability [Unknown]
  - Headache [Unknown]
  - Nausea [Unknown]
  - Drug dose omission [Unknown]
